FAERS Safety Report 5122516-5 (Version None)
Quarter: 2006Q4

REPORT INFORMATION
  Report Type: 
  Country: None (occurrence: None)
  Receive Date: 20061007
  Receipt Date: 20060926
  Transmission Date: 20070319
  Serious: Yes (Other)
  Sender: FDA-Public Use
  Company Number: JP-PURDUE-USA_2006_0025279

PATIENT
  Age: 70 Year
  Sex: Female

DRUGS (3)
  1. SENNOSIDES [Suspect]
     Indication: CONSTIPATION
     Dosage: UNK, SEE TEXT
  2. DILTIAZEM HCL [Concomitant]
     Indication: HYPERTENSION
  3. ALOE BARBADENSIS [Concomitant]
     Indication: DRUG USE FOR UNKNOWN INDICATION

REACTIONS (4)
  - EPIDERMAL NECROSIS [None]
  - ERYTHEMA MULTIFORME [None]
  - LYMPHOCYTIC INFILTRATION [None]
  - PIGMENTATION DISORDER [None]
